FAERS Safety Report 7159083-0 (Version None)
Quarter: 2010Q4

REPORT INFORMATION
  Report Type: 
  Country: None (occurrence: None)
  Receive Date: 20101214
  Receipt Date: 20101209
  Transmission Date: 20110411
  Serious: Yes (Other)
  Sender: FDA-Public Use
  Company Number: CHPA2009JP20288

PATIENT
  Age: 48 Year
  Sex: Male

DRUGS (2)
  1. NICOTINELL TTS (NCH) [Suspect]
     Indication: SMOKING CESSATION THERAPY
     Dosage: 35 MG, QD
     Route: 062
     Dates: start: 20090923, end: 20091020
  2. NICOTINELL TTS (NCH) [Suspect]
     Dosage: 17.5 MG, QD
     Route: 062
     Dates: start: 20091021, end: 20091028

REACTIONS (4)
  - DEPRESSION [None]
  - LISTLESS [None]
  - OVERDOSE [None]
  - TREATMENT NONCOMPLIANCE [None]
